FAERS Safety Report 18810584 (Version 1)
Quarter: 2021Q1

REPORT INFORMATION
  Report Type: Spontaneous
  Country: US (occurrence: US)
  Receive Date: 20210130
  Receipt Date: 20210130
  Transmission Date: 20210419
  Serious: No
  Sender: FDA-Public Use
  Company Number: US-DRREDDYS-USA/USA/21/0131208

PATIENT
  Age: 25 Year
  Sex: Female

DRUGS (1)
  1. ZENATANE [Suspect]
     Active Substance: ISOTRETINOIN
     Indication: PRODUCT USED FOR UNKNOWN INDICATION
     Dosage: RMA ISSUE DATE: 7/30/2020 1:24:00 PM, 9/1/2020 2:14:50 PM, 10/2/2020 2:29:53 PM, 11/2/2020 5:12:36 P
     Route: 048

REACTIONS (1)
  - Therapy cessation [Unknown]
